FAERS Safety Report 9261567 (Version 1)
Quarter: 2013Q2

REPORT INFORMATION
  Report Type: Spontaneous
  Country: BR (occurrence: BR)
  Receive Date: 20130429
  Receipt Date: 20130429
  Transmission Date: 20140414
  Serious: Yes (Other)
  Sender: FDA-Public Use
  Company Number: PHHY2013BR040320

PATIENT
  Sex: Male
  Weight: 40 kg

DRUGS (3)
  1. RITALIN LA [Suspect]
     Indication: ATTENTION DEFICIT/HYPERACTIVITY DISORDER
     Dosage: 1 DF, DAILY
     Route: 048
  2. RITALINA [Suspect]
     Indication: ATTENTION DEFICIT/HYPERACTIVITY DISORDER
     Dosage: 2 DF, DAILY
     Route: 048
  3. REVITONE [Concomitant]
     Indication: PHYSICAL FITNESS TRAINING
     Dosage: 10 ML, PER DAY
     Route: 048

REACTIONS (2)
  - Poisoning [Recovered/Resolved]
  - Abdominal pain upper [Recovered/Resolved]
